FAERS Safety Report 20340262 (Version 2)
Quarter: 2022Q2

REPORT INFORMATION
  Report Type: Other
  Country: JP (occurrence: None)
  Receive Date: 20220117
  Receipt Date: 20220419
  Transmission Date: 20220721
  Serious: Yes (Death, Life-Threatening)
  Sender: FDA-Public Use
  Company Number: JP-ROCHE-3002337

PATIENT
  Age: 32 Year
  Sex: Female
  Weight: 61 kg

DRUGS (30)
  1. RITUXIMAB [Suspect]
     Active Substance: RITUXIMAB
     Indication: Liver transplant rejection
     Dosage: ONE TIME DOSE
     Route: 041
     Dates: start: 20180316, end: 20180316
  2. RITUXIMAB [Suspect]
     Active Substance: RITUXIMAB
     Dosage: ONE TIME DOSE
     Route: 041
     Dates: start: 20180323, end: 20180323
  3. POLARAMINE [Concomitant]
     Active Substance: DEXCHLORPHENIRAMINE MALEATE
     Dosage: SUBSEQUENT DOSE RECEIVED ON 23-MAR-2018,
     Route: 042
     Dates: start: 20180316, end: 20180316
  4. DEXAMETHASONE SODIUM PHOSPHATE [Concomitant]
     Active Substance: DEXAMETHASONE SODIUM PHOSPHATE
     Dosage: SUBSEQUENT DOSE RECEIVED ON 23-MAR-2018
     Route: 042
     Dates: start: 20180316, end: 20180316
  5. PREDONINE [Concomitant]
     Active Substance: PREDNISOLONE
     Route: 048
     Dates: start: 20180325, end: 20180325
  6. PREDONINE [Concomitant]
     Active Substance: PREDNISOLONE
     Route: 048
     Dates: start: 20180403, end: 20180405
  7. PREDONINE [Concomitant]
     Active Substance: PREDNISOLONE
     Route: 042
     Dates: start: 20180406, end: 20180410
  8. METHYLPREDNISOLONE SODIUM SUCCINATE [Concomitant]
     Active Substance: METHYLPREDNISOLONE SODIUM SUCCINATE
     Route: 042
     Dates: start: 20180327, end: 20180329
  9. METHYLPREDNISOLONE SODIUM SUCCINATE [Concomitant]
     Active Substance: METHYLPREDNISOLONE SODIUM SUCCINATE
     Route: 042
     Dates: start: 20180330, end: 20180402
  10. SOLU-CORTEF [Concomitant]
     Active Substance: HYDROCORTISONE SODIUM SUCCINATE
     Route: 042
     Dates: start: 20180416, end: 20180424
  11. PIPERACILLIN SODIUM [Concomitant]
     Active Substance: PIPERACILLIN SODIUM
     Route: 042
     Dates: start: 20180327, end: 20180329
  12. FLUMARIN (JAPAN) [Concomitant]
     Route: 042
     Dates: start: 20180327, end: 20180329
  13. IMIPENEM AND CILASTATIN [Concomitant]
     Active Substance: CILASTATIN SODIUM\IMIPENEM
     Route: 042
     Dates: start: 20180331, end: 20180406
  14. MEROPENEM [Concomitant]
     Active Substance: MEROPENEM
     Route: 042
     Dates: start: 20180408, end: 20180411
  15. VFEND [Concomitant]
     Active Substance: VORICONAZOLE
     Route: 042
     Dates: start: 20180411, end: 20180413
  16. PROSTANDIN [Concomitant]
     Route: 042
     Dates: start: 20180410, end: 20180414
  17. GABEXATE MESYLATE [Concomitant]
     Active Substance: GABEXATE MESYLATE
     Route: 042
     Dates: start: 20180329, end: 20180408
  18. MYCOPHENOLATE MOFETIL [Concomitant]
     Active Substance: MYCOPHENOLATE MOFETIL
     Route: 048
     Dates: start: 20180325, end: 20180325
  19. MYCOPHENOLATE MOFETIL [Concomitant]
     Active Substance: MYCOPHENOLATE MOFETIL
     Route: 048
     Dates: start: 20180411, end: 20180420
  20. MYCOPHENOLATE MOFETIL [Concomitant]
     Active Substance: MYCOPHENOLATE MOFETIL
     Route: 048
     Dates: start: 20180328, end: 20180410
  21. CYCLOSPORINE [Concomitant]
     Active Substance: CYCLOSPORINE
     Indication: Liver transplant rejection
     Route: 042
     Dates: start: 20180403, end: 20180405
  22. CYCLOSPORINE [Concomitant]
     Active Substance: CYCLOSPORINE
     Route: 042
     Dates: start: 20180406, end: 20180406
  23. CYCLOSPORINE [Concomitant]
     Active Substance: CYCLOSPORINE
     Route: 042
     Dates: start: 20180407, end: 20180407
  24. CYCLOSPORINE [Concomitant]
     Active Substance: CYCLOSPORINE
     Route: 042
     Dates: start: 20180408, end: 20180408
  25. CYCLOSPORINE [Concomitant]
     Active Substance: CYCLOSPORINE
     Route: 042
     Dates: start: 20180409, end: 20180409
  26. CYCLOSPORINE [Concomitant]
     Active Substance: CYCLOSPORINE
     Route: 042
     Dates: start: 20180410, end: 20180410
  27. CYCLOSPORINE [Concomitant]
     Active Substance: CYCLOSPORINE
     Route: 042
     Dates: start: 20180411, end: 20180411
  28. CYCLOSPORINE [Concomitant]
     Active Substance: CYCLOSPORINE
     Route: 042
     Dates: start: 20180412, end: 20180425
  29. TACROLIMUS [Concomitant]
     Active Substance: TACROLIMUS
     Indication: Liver transplant rejection
     Route: 042
     Dates: start: 20180327, end: 20180328
  30. TACROLIMUS [Concomitant]
     Active Substance: TACROLIMUS
     Route: 042
     Dates: start: 20180329, end: 20180402

REACTIONS (4)
  - Portal vein thrombosis [Recovering/Resolving]
  - Large intestine perforation [Fatal]
  - Small intestinal haemorrhage [Recovering/Resolving]
  - Sepsis [Fatal]

NARRATIVE: CASE EVENT DATE: 20180328
